FAERS Safety Report 11548547 (Version 1)
Quarter: 2015Q3

REPORT INFORMATION
  Report Type: Spontaneous
  Country: US (occurrence: US)
  Receive Date: 20150924
  Receipt Date: 20150924
  Transmission Date: 20151125
  Serious: No
  Sender: FDA-Public Use
  Company Number: US-INCYTE CORPORATION-2015IN001722

PATIENT
  Sex: Male

DRUGS (6)
  1. CAFFEINE. [Concomitant]
     Active Substance: CAFFEINE
  2. TYLENOL 8 HR [Concomitant]
     Active Substance: ACETAMINOPHEN
  3. PERCOCET                           /00446701/ [Concomitant]
     Active Substance: ACETAMINOPHEN\OXYCODONE HYDROCHLORIDE\OXYCODONE TEREPHTHALATE
  4. ASPIRIN. [Concomitant]
     Active Substance: ASPIRIN
  5. DOXYCYCLINE MONOHYDRATE [Concomitant]
     Active Substance: DOXYCYCLINE
  6. JAKAFI [Suspect]
     Active Substance: RUXOLITINIB
     Dosage: 10 MG, BID
     Route: 048

REACTIONS (2)
  - Stomatitis [Recovering/Resolving]
  - Headache [Recovering/Resolving]
